FAERS Safety Report 6099960-5 (Version None)
Quarter: 2009Q1

REPORT INFORMATION
  Report Type: 
  Country: None (occurrence: None)
  Receive Date: 20090303
  Receipt Date: 20090216
  Transmission Date: 20090719
  Serious: Yes (Hospitalization, Other)
  Sender: FDA-Public Use
  Company Number: PHHY2009MX04545

PATIENT
  Sex: Female

DRUGS (3)
  1. DIOVAN [Suspect]
     Indication: HYPERTENSION
     Dosage: 1 TABLET (80 MG) PER DAY
     Route: 048
     Dates: start: 20060601
  2. MEMANTINE HCL [Concomitant]
  3. NIMOTOP [Concomitant]

REACTIONS (10)
  - ABDOMINAL PAIN [None]
  - BACK PAIN [None]
  - DIVERTICULUM [None]
  - FAECES DISCOLOURED [None]
  - GASTRIC LAVAGE [None]
  - GASTRITIS EROSIVE [None]
  - HAEMATEMESIS [None]
  - HYPERTENSION [None]
  - ILEUS PARALYTIC [None]
  - INFREQUENT BOWEL MOVEMENTS [None]
